FAERS Safety Report 8987259 (Version 1)
Quarter: 2012Q4

REPORT INFORMATION
  Report Type: Report from Study
  Country: CA (occurrence: CA)
  Receive Date: 20121226
  Receipt Date: 20121226
  Transmission Date: 20130627
  Serious: Yes (Other)
  Sender: FDA-Public Use
  Company Number: CA-ROCHE-1147806

PATIENT
  Sex: Male
  Weight: 78 kg

DRUGS (5)
  1. BEVACIZUMAB [Suspect]
     Indication: COLON CANCER
     Route: 042
     Dates: start: 20120822, end: 20121111
  2. NORVASC [Concomitant]
  3. VITAMIN C [Concomitant]
  4. VITAMIN D [Concomitant]
  5. VITAMIN B [Concomitant]

REACTIONS (3)
  - Protein urine [Not Recovered/Not Resolved]
  - Platelet count decreased [Not Recovered/Not Resolved]
  - Lung neoplasm [Not Recovered/Not Resolved]
